FAERS Safety Report 17546927 (Version 1)
Quarter: 2020Q1

REPORT INFORMATION
  Report Type: Spontaneous
  Country: US (occurrence: US)
  Receive Date: 20200316
  Receipt Date: 20200316
  Transmission Date: 20200409
  Serious: No
  Sender: FDA-Public Use
  Company Number: US-TEVA-2020-US-1199879

PATIENT
  Age: 15 Year
  Sex: Female

DRUGS (3)
  1. GUANFACINE HYDROCHLORIDE. [Suspect]
     Active Substance: GUANFACINE HYDROCHLORIDE
     Route: 065
     Dates: start: 201912
  2. DICYCLOMINE HYDROCHLORIDE. [Suspect]
     Active Substance: DICYCLOMINE HYDROCHLORIDE
     Route: 065
  3. GUANFACINE HYDROCHLORIDE. [Suspect]
     Active Substance: GUANFACINE HYDROCHLORIDE
     Route: 065
     Dates: start: 201912

REACTIONS (2)
  - Gastrointestinal disorder [Not Recovered/Not Resolved]
  - Drug hypersensitivity [Unknown]

NARRATIVE: CASE EVENT DATE: 202001
